FAERS Safety Report 11816031 (Version 1)
Quarter: 2015Q4

REPORT INFORMATION
  Report Type: Spontaneous
  Country: US (occurrence: US)
  Receive Date: 20151209
  Receipt Date: 20151209
  Transmission Date: 20160305
  Serious: No
  Sender: FDA-Public Use
  Company Number: US-GALDERMA-US15001623

PATIENT
  Age: 47 Year
  Sex: Male

DRUGS (4)
  1. METROGEL [Suspect]
     Active Substance: METRONIDAZOLE
     Indication: ROSACEA
     Route: 061
  2. ORACEA (DOXYCYCLINE, USP) 40MG [Concomitant]
     Indication: ROSACEA
     Dosage: 40MG
     Route: 048
     Dates: start: 201403, end: 201411
  3. ORACEA (DOXYCYCLINE, USP) 40MG [Concomitant]
     Indication: ROSACEA
     Route: 048
     Dates: start: 20150323
  4. CLEAN AND CLEAR CLEANSER [Concomitant]
     Indication: THERAPEUTIC SKIN CARE TOPICAL
     Route: 061
     Dates: start: 2007

REACTIONS (1)
  - Skin burning sensation [Recovered/Resolved]
